FAERS Safety Report 17144686 (Version 1)
Quarter: 2019Q4

REPORT INFORMATION
  Report Type: Spontaneous
  Country: US (occurrence: US)
  Receive Date: 20191212
  Receipt Date: 20191212
  Transmission Date: 20200122
  Serious: No
  Sender: FDA-Public Use
  Company Number: US-NOVEN PHARMACEUTICALS, INC.-US2019000064

PATIENT

DRUGS (1)
  1. MINIVELLE [Suspect]
     Active Substance: ESTRADIOL
     Indication: HOT FLUSH
     Dosage: USING 0.1 MG PATCH FOR THREE DAYS AND THE 0.05 MG PATCH, UNKNOWN
     Route: 062

REACTIONS (7)
  - Hot flush [Recovering/Resolving]
  - Therapeutic product effect incomplete [Recovering/Resolving]
  - Product adhesion issue [Unknown]
  - Off label use [Not Recovered/Not Resolved]
  - Insomnia [Recovering/Resolving]
  - Product quality issue [Unknown]
  - Spider vein [Not Recovered/Not Resolved]
